FAERS Safety Report 4714253-3 (Version None)
Quarter: 2005Q2

REPORT INFORMATION
  Report Type: 
  Country: None (occurrence: None)
  Receive Date: 20050630
  Receipt Date: 20041220
  Transmission Date: 20051028
  Serious: Yes (Hospitalization)
  Sender: FDA-Public Use
  Company Number: USA030535847

PATIENT
  Age: 75 Year
  Sex: Female

DRUGS (5)
  1. HUMALOG [Suspect]
     Dates: start: 20040101, end: 20041217
  2. HUMALOG [Suspect]
     Indication: DIABETES MELLITUS
     Dosage: 35 U/1 IN THE MORNING
     Dates: start: 20030409
  3. ACTOS [Concomitant]
  4. AMARYL [Concomitant]
  5. GLUCOPHAGE [Concomitant]

REACTIONS (6)
  - ARTHRITIS [None]
  - FALL [None]
  - FEMORAL NERVE INJURY [None]
  - HIP ARTHROPLASTY [None]
  - INJECTION SITE HAEMORRHAGE [None]
  - JOINT CREPITATION [None]
